FAERS Safety Report 25115153 (Version 1)
Quarter: 2025Q1

REPORT INFORMATION
  Report Type: Spontaneous
  Country: CZ (occurrence: CZ)
  Receive Date: 20250324
  Receipt Date: 20250324
  Transmission Date: 20250409
  Serious: Yes (Hospitalization, Other)
  Sender: BRISTOL-MYERS SQUIBB COMPANY
  Company Number: CZ-BRISTOL-MYERS SQUIBB COMPANY-2025-041882

PATIENT
  Age: 70 Year
  Sex: Male

DRUGS (9)
  1. OPDIVO [Suspect]
     Active Substance: NIVOLUMAB
     Indication: Lung neoplasm malignant
     Dosage: 24 DOSES OF 240MG
     Route: 042
     Dates: start: 20230410, end: 20240910
  2. OPDIVO [Suspect]
     Active Substance: NIVOLUMAB
     Route: 042
  3. PREDNISONE [Suspect]
     Active Substance: PREDNISONE
     Indication: Hepatitis
  4. PREDNISONE [Suspect]
     Active Substance: PREDNISONE
  5. PREDNISONE [Suspect]
     Active Substance: PREDNISONE
  6. PREDNISONE [Suspect]
     Active Substance: PREDNISONE
  7. LYRICA [Concomitant]
     Active Substance: PREGABALIN
     Indication: Product used for unknown indication
     Dosage: 75
     Route: 048
  8. ASPIRIN [Concomitant]
     Active Substance: ASPIRIN
     Indication: Product used for unknown indication
     Dosage: 100
     Route: 048
  9. PERINDOPRIL [Concomitant]
     Active Substance: PERINDOPRIL
     Indication: Product used for unknown indication
     Dosage: 5
     Route: 048

REACTIONS (4)
  - Hepatitis [Not Recovered/Not Resolved]
  - Myopathy [Not Recovered/Not Resolved]
  - Pneumonitis [Not Recovered/Not Resolved]
  - Diabetes mellitus [Not Recovered/Not Resolved]

NARRATIVE: CASE EVENT DATE: 20241218
